FAERS Safety Report 19087346 (Version 2)
Quarter: 2021Q2

REPORT INFORMATION
  Report Type: Report from Study
  Country: US (occurrence: US)
  Receive Date: 20210402
  Receipt Date: 20210517
  Transmission Date: 20210717
  Serious: No
  Sender: FDA-Public Use
  Company Number: US-CELGENEUS-USA-20210306467

PATIENT
  Age: 63 Year
  Sex: Male
  Weight: 97 kg

DRUGS (14)
  1. AMLODIPINE [Concomitant]
     Active Substance: AMLODIPINE BESYLATE
     Indication: HYPERTENSION
     Dosage: 2.5 MG X 1 X 1 DAYS
     Route: 048
     Dates: start: 20200508
  2. LEVOCETIRIZINE [Concomitant]
     Active Substance: LEVOCETIRIZINE
     Indication: SEASONAL ALLERGY
     Dosage: 5 MG X 1 X 1 DAYS
     Route: 048
     Dates: start: 20200421
  3. FEDRATINIB [Suspect]
     Active Substance: FEDRATINIB
     Dosage: 300 MG X 1 X 1 DAYS
     Route: 048
     Dates: start: 20200620
  4. OMEPRAZOLE. [Concomitant]
     Active Substance: OMEPRAZOLE
     Indication: ADVERSE EVENT
     Dosage: 10 MG X 1 X 1 DAYS
     Route: 048
     Dates: start: 20200303
  5. TAMSULOSIN HCL [Concomitant]
     Active Substance: TAMSULOSIN HYDROCHLORIDE
     Indication: NEPHROLITHIASIS
     Dosage: 0.4 MG X 1 X 1 DAYS
     Route: 048
     Dates: start: 2017
  6. MUPIROCIN 2% [Concomitant]
     Active Substance: MUPIROCIN
     Indication: RASH MACULO-PAPULAR
     Dosage: 1 APPLICATION X PRN
     Route: 061
     Dates: start: 201802
  7. OMEPRAZOLE. [Concomitant]
     Active Substance: OMEPRAZOLE
     Indication: GASTROOESOPHAGEAL REFLUX DISEASE
     Dosage: 40 MG X 1 X 1 DAYS
     Route: 048
     Dates: start: 2016, end: 20200212
  8. TRIAMCINOLONE 0.10% [Concomitant]
     Indication: RASH MACULO-PAPULAR
     Dosage: 1 APPLICATION X PRN
     Route: 061
     Dates: start: 201802
  9. FEDRATINIB [Suspect]
     Active Substance: FEDRATINIB
     Indication: PRIMARY MYELOFIBROSIS
     Dosage: 400 MG X 1 X 1 DAYS
     Route: 048
     Dates: start: 20200214, end: 20200302
  10. TRAZODONE [Concomitant]
     Active Substance: TRAZODONE HYDROCHLORIDE
     Indication: HYPERSOMNIA
     Dosage: 50 MG X 1 X 1 DAYS
     Route: 048
     Dates: start: 201902, end: 201907
  11. CYCLOBENZAPRINE. [Concomitant]
     Active Substance: CYCLOBENZAPRINE
     Indication: MUSCLE SPASMS
     Dosage: 10 MG X 1 X 1 DAYS
     Route: 048
     Dates: start: 2018
  12. FERROUS GLUCONATE [Concomitant]
     Active Substance: FERROUS GLUCONATE
     Indication: BLOOD IRON DECREASED
     Dosage: 324 MG X 1 X 1 DAYS
     Route: 048
     Dates: start: 2019
  13. TERBINAFINE. [Concomitant]
     Active Substance: TERBINAFINE
     Indication: RASH MACULO-PAPULAR
     Dosage: 250 MG X PRN
     Route: 048
     Dates: start: 201802, end: 201901
  14. LISINOPRIL. [Concomitant]
     Active Substance: LISINOPRIL
     Indication: HYPERTENSION
     Dosage: 20 MG X 1 X 1 DAYS
     Route: 048
     Dates: start: 2018, end: 20200213

REACTIONS (1)
  - Vitamin B1 decreased [Not Recovered/Not Resolved]

NARRATIVE: CASE EVENT DATE: 20210318
